FAERS Safety Report 9295381 (Version 1)
Quarter: 2013Q1

REPORT INFORMATION
  Report Type: Spontaneous
  Country: US (occurrence: None)
  Receive Date: 20121227
  Receipt Date: 20121227
  Transmission Date: 20140127
  Serious: Yes (Hospitalization)
  Sender: FDA-Public Use
  Company Number: PHEH2011US008920

PATIENT
  Age: 70 Year
  Sex: Female
  Weight: 78.02 kg

DRUGS (12)
  1. EXJADE [Suspect]
     Indication: HAEMOCHROMATOSIS
     Route: 048
     Dates: start: 20110803, end: 201109
  2. JANUVIA (SITAGLIPTIN PHOSPHATE) [Concomitant]
  3. COUMADINE (WARFARIN SODIUM) [Concomitant]
  4. VENTOLINE (SALBUTAMOL) [Concomitant]
  5. PROVENTIL INHALER (SALBUTAMOL) [Concomitant]
  6. LIPITOR (ATORVASTATIN CALCIUM) [Concomitant]
  7. NEXIUM (ESOMEPRAZOLE MAGNESIUM) TABLET [Concomitant]
  8. ALTACE (RAMIPRIL) CAPSULE [Concomitant]
  9. AMARYL (GLIMEPIRIDE) [Concomitant]
  10. VERAPAMIL HYDROCHLORIDE [Concomitant]
  11. LORTAB (HYDROCODONE BITARTRATE, PARACETAMOL) [Concomitant]
  12. WARFARIN SODIUM (WARFARIN SODIUM) [Concomitant]

REACTIONS (1)
  - Renal failure [None]
